FAERS Safety Report 13895547 (Version 1)
Quarter: 2017Q3

REPORT INFORMATION
  Report Type: Spontaneous
  Country: US (occurrence: US)
  Receive Date: 20170818
  Receipt Date: 20170818
  Transmission Date: 20171127
  Serious: Yes (Death)
  Sender: FDA-Public Use
  Company Number: None

PATIENT
  Age: 88 Year
  Sex: Male
  Weight: 93.2 kg

DRUGS (2)
  1. WARFARIN [Suspect]
     Active Substance: WARFARIN
     Indication: PROTEIN C DEFICIENCY
     Dosage: ?          OTHER FREQUENCY:EVERY OTHER DAY;?
     Route: 048
  2. WARFARIN [Suspect]
     Active Substance: WARFARIN
     Indication: PROTEIN C DEFICIENCY
     Dosage: ?          OTHER FREQUENCY:EVERY OTHER DAY;?
     Route: 048

REACTIONS (1)
  - Cerebral haematoma [None]

NARRATIVE: CASE EVENT DATE: 20170711
